FAERS Safety Report 12560212 (Version 1)
Quarter: 2016Q3

REPORT INFORMATION
  Report Type: Spontaneous
  Country: US (occurrence: US)
  Receive Date: 20160715
  Receipt Date: 20160715
  Transmission Date: 20161109
  Serious: No
  Sender: FDA-Public Use
  Company Number: US-JNJFOC-20160627207

PATIENT
  Sex: Female

DRUGS (2)
  1. ROGAIN [Suspect]
     Active Substance: MINOXIDIL
     Indication: PRODUCT USED FOR UNKNOWN INDICATION
  2. ROGAIN [Suspect]
     Active Substance: MINOXIDIL

REACTIONS (2)
  - Pruritus [Recovered/Resolved]
  - Medication residue present [Recovered/Resolved]
